FAERS Safety Report 24139427 (Version 1)
Quarter: 2024Q3

REPORT INFORMATION
  Report Type: Report from Study
  Country: US (occurrence: US)
  Receive Date: 20240726
  Receipt Date: 20240726
  Transmission Date: 20241017
  Serious: Yes (Hospitalization)
  Sender: ACADIA PHARMACEUTICALS
  Company Number: US-ACADIA PHARMACEUTICALS INC.-ACA-2024-PIM-003241

PATIENT
  Sex: Male

DRUGS (16)
  1. NUPLAZID [Suspect]
     Active Substance: PIMAVANSERIN TARTRATE
     Indication: Parkinson^s disease
     Dosage: 34 MILLIGRAM, QD
     Route: 048
     Dates: start: 202005
  2. TOLTERODINE [Concomitant]
     Active Substance: TOLTERODINE
  3. CLONAZEPAM [Concomitant]
     Active Substance: CLONAZEPAM
  4. ATORVASTATIN [Concomitant]
     Active Substance: ATORVASTATIN
  5. TAMSULOSIN [Concomitant]
     Active Substance: TAMSULOSIN
  6. ASPIRIN [Concomitant]
     Active Substance: ASPIRIN
  7. RIVASTIGMINE [Concomitant]
     Active Substance: RIVASTIGMINE
  8. VITAMIN B12 [Concomitant]
     Active Substance: CYANOCOBALAMIN
  9. QUETIAPINE FUMARATE [Suspect]
     Active Substance: QUETIAPINE FUMARATE
  10. BROMSITE [Concomitant]
     Active Substance: BROMFENAC SODIUM
  11. TRAZODONE [Concomitant]
     Active Substance: TRAZODONE HYDROCHLORIDE
  12. MIDODRINE [Concomitant]
     Active Substance: MIDODRINE
  13. LACTO-PECTIN [Concomitant]
  14. FINASTERIDE [Concomitant]
     Active Substance: FINASTERIDE
  15. RYTARY [Concomitant]
     Active Substance: CARBIDOPA\LEVODOPA
  16. GEMTESA [Concomitant]
     Active Substance: VIBEGRON

REACTIONS (1)
  - Blood pressure abnormal [Not Recovered/Not Resolved]
